FAERS Safety Report 8282576-X (Version None)
Quarter: 2012Q2

REPORT INFORMATION
  Report Type: 
  Country: None (occurrence: None)
  Receive Date: 20120413
  Receipt Date: 20120409
  Transmission Date: 20120825
  Serious: Yes (Life-Threatening, Hospitalization)
  Sender: FDA-Public Use
  Company Number: ES-SANOFI-AVENTIS-2012SA010457

PATIENT
  Age: 64 Year
  Sex: Male

DRUGS (6)
  1. FUROSEMIDE [Suspect]
     Indication: HYPERTENSION
     Route: 048
     Dates: start: 20060201, end: 20110419
  2. ALDACTONE [Interacting]
     Indication: HYPERTENSION
     Route: 048
     Dates: start: 20060201, end: 20110419
  3. ENALAPRIL MALEATE [Interacting]
     Indication: HYPERTENSION
     Route: 048
     Dates: start: 20060201, end: 20110419
  4. GLYBURIDE [Interacting]
     Indication: DIABETES MELLITUS
     Route: 048
     Dates: start: 20060201, end: 20110419
  5. METFORMIN HCL [Interacting]
     Indication: DIABETES MELLITUS
     Route: 048
     Dates: start: 20080401, end: 20110419
  6. SINTROM [Concomitant]
     Indication: ATRIAL FIBRILLATION
     Route: 048
     Dates: start: 20060201, end: 20110419

REACTIONS (3)
  - HYPOGLYCAEMIA [None]
  - RENAL FAILURE ACUTE [None]
  - HYPERKALAEMIA [None]
